FAERS Safety Report 25645127 (Version 1)
Quarter: 2025Q3

REPORT INFORMATION
  Report Type: Spontaneous
  Country: US (occurrence: None)
  Receive Date: 20250804
  Receipt Date: 20250804
  Transmission Date: 20251021
  Serious: Yes (Other)
  Sender: FDA-CTU
  Company Number: None

PATIENT
  Age: 27 Year
  Sex: Female
  Weight: 71.55 kg

DRUGS (2)
  1. HERBALS\MUSHROOMS UNSPECIFIED [Suspect]
     Active Substance: HERBALS\MUSHROOMS UNSPECIFIED
     Indication: Affective disorder
     Dates: start: 20250803, end: 20250803
  2. HERBALS\MUSHROOMS UNSPECIFIED [Suspect]
     Active Substance: HERBALS\MUSHROOMS UNSPECIFIED
     Indication: Disturbance in attention

REACTIONS (4)
  - Visual impairment [None]
  - Metamorphopsia [None]
  - Mood altered [None]
  - Product complaint [None]

NARRATIVE: CASE EVENT DATE: 20250803
